FAERS Safety Report 7458436-0 (Version None)
Quarter: 2011Q2

REPORT INFORMATION
  Report Type: 
  Country: None (occurrence: None)
  Receive Date: 20110504
  Receipt Date: 20110426
  Transmission Date: 20111010
  Serious: Yes (Hospitalization)
  Sender: FDA-Public Use
  Company Number: B0685085A

PATIENT
  Sex: Male

DRUGS (6)
  1. ZANTAC [Suspect]
     Indication: PREMEDICATION
     Dosage: 25MG SINGLE DOSE
     Route: 042
     Dates: start: 20101015, end: 20101015
  2. PACLITAXEL [Suspect]
     Indication: BASAL CELL CARCINOMA
     Dosage: 110MG SINGLE DOSE
     Route: 042
     Dates: start: 20101015, end: 20101015
  3. CARBOPLATIN [Suspect]
     Indication: BASAL CELL CARCINOMA
     Dosage: 110MG SINGLE DOSE
     Route: 042
     Dates: start: 20101015, end: 20101015
  4. METHYLPREDNISOLONE [Concomitant]
     Indication: PREMEDICATION
     Dosage: 60MG SINGLE DOSE
     Route: 042
     Dates: start: 20101015, end: 20101015
  5. POLARAMINE [Suspect]
     Indication: PREMEDICATION
     Dosage: 2.5MG SINGLE DOSE
     Route: 042
     Dates: start: 20101015, end: 20101015
  6. ZOPHREN [Suspect]
     Indication: PREMEDICATION
     Dosage: 8MG SINGLE DOSE
     Route: 042
     Dates: start: 20101015, end: 20101015

REACTIONS (2)
  - PRURITUS [None]
  - ERYTHEMA [None]
